FAERS Safety Report 14841978 (Version 1)
Quarter: 2018Q2

REPORT INFORMATION
  Report Type: Spontaneous
  Country: US (occurrence: US)
  Receive Date: 20180503
  Receipt Date: 20180503
  Transmission Date: 20180711
  Serious: Yes (Hospitalization)
  Sender: FDA-Public Use
  Company Number: US-ROCHE-2113057

PATIENT
  Sex: Female

DRUGS (7)
  1. NAPROXEN. [Concomitant]
     Active Substance: NAPROXEN
     Route: 065
  2. ONDANSETRON [Concomitant]
     Active Substance: ONDANSETRON
  3. PREGABALIN. [Concomitant]
     Active Substance: PREGABALIN
  4. TYSABRI [Suspect]
     Active Substance: NATALIZUMAB
     Indication: MULTIPLE SCLEROSIS
     Dosage: RECEIVED TOTAL 91 INFUSION. MOST RECENT INFUSION RECEIVED ON 03/FEB/2018
     Route: 042
     Dates: start: 201307
  5. DIPHENHYDRAMINE. [Concomitant]
     Active Substance: DIPHENHYDRAMINE
  6. TYSABRI [Suspect]
     Active Substance: NATALIZUMAB
     Route: 042
     Dates: start: 20100519, end: 20121215
  7. OCREVUS [Suspect]
     Active Substance: OCRELIZUMAB
     Indication: MULTIPLE SCLEROSIS
     Dosage: CYCLES: ONE DOSE OF 300MG
     Route: 042
     Dates: start: 20180406

REACTIONS (1)
  - Progressive multifocal leukoencephalopathy [Not Recovered/Not Resolved]
